FAERS Safety Report 9730391 (Version 1)
Quarter: 2013Q4

REPORT INFORMATION
  Report Type: Spontaneous
  Country: CA (occurrence: CA)
  Receive Date: 20131202
  Receipt Date: 20131202
  Transmission Date: 20140711
  Serious: Yes (Hospitalization, Other)
  Sender: FDA-Public Use
  Company Number: CA-B.I. PHARMACEUTICALS,INC./RIDGEFIELD-2013-BI-39151CN

PATIENT
  Age: 76 Year
  Sex: Female
  Weight: 44 kg

DRUGS (5)
  1. PRADAX [Suspect]
     Dosage: 220 MG
     Route: 048
  2. PROLIA PRE-FILLED SYRINGE. PRESERVATIVE-FREE [Suspect]
     Route: 058
  3. MIRTAZAPINE [Concomitant]
  4. NOVOMIX 30 (PENFILL CARTRIDGE) [Concomitant]
     Route: 058
  5. SYNTHROID [Concomitant]

REACTIONS (2)
  - Cerebrovascular accident [Not Recovered/Not Resolved]
  - Aphagia [Not Recovered/Not Resolved]
